FAERS Safety Report 20595208 (Version 2)
Quarter: 2022Q2

REPORT INFORMATION
  Report Type: Spontaneous
  Country: CO (occurrence: CO)
  Receive Date: 20220315
  Receipt Date: 20220405
  Transmission Date: 20220720
  Serious: Yes (Other)
  Sender: FDA-Public Use
  Company Number: CO-AMRYT PHARMACEUTICALS DAC-AEGR005604

PATIENT

DRUGS (3)
  1. JUXTAPID [Suspect]
     Active Substance: LOMITAPIDE MESYLATE
     Indication: Type IIa hyperlipidaemia
     Dosage: 10 MILLIGRAM, QD
     Route: 048
     Dates: start: 20211101, end: 20220302
  2. EZETIMIBE\ROSUVASTATIN [Concomitant]
     Active Substance: EZETIMIBE\ROSUVASTATIN
     Indication: Hyperlipidaemia
     Dosage: 40/10 MILLIGRAM, QD
     Route: 048
     Dates: start: 2016
  3. FISH OIL [Concomitant]
     Active Substance: FISH OIL
     Indication: Hyperlipidaemia
     Dosage: 1200 MILLIGRAM, QD
     Route: 048
     Dates: start: 2019

REACTIONS (3)
  - Hypertransaminasaemia [Not Recovered/Not Resolved]
  - Diarrhoea [Recovered/Resolved]
  - Diet noncompliance [Recovered/Resolved]

NARRATIVE: CASE EVENT DATE: 20220201
